FAERS Safety Report 25050244 (Version 1)
Quarter: 2025Q1

REPORT INFORMATION
  Report Type: Spontaneous
  Country: GB (occurrence: GB)
  Receive Date: 20250307
  Receipt Date: 20250307
  Transmission Date: 20250409
  Serious: Yes (Hospitalization)
  Sender: MYLAN
  Company Number: GB-MYLANLABS-2025M1019247

PATIENT
  Sex: Female

DRUGS (4)
  1. CLOZARIL [Suspect]
     Active Substance: CLOZAPINE
     Indication: Schizophrenia
     Dates: start: 20020115, end: 20250227
  2. CLOZARIL [Suspect]
     Active Substance: CLOZAPINE
     Route: 048
     Dates: start: 20020115, end: 20250227
  3. CLOZARIL [Suspect]
     Active Substance: CLOZAPINE
     Route: 048
     Dates: start: 20020115, end: 20250227
  4. CLOZARIL [Suspect]
     Active Substance: CLOZAPINE
     Dates: start: 20020115, end: 20250227

REACTIONS (3)
  - Malaise [Unknown]
  - Infection [Unknown]
  - Product dose omission issue [Unknown]
